FAERS Safety Report 23217925 (Version 1)
Quarter: 2023Q4

REPORT INFORMATION
  Report Type: Other
  Country: None (occurrence: IR)
  Receive Date: 20231122
  Receipt Date: 20231122
  Transmission Date: 20240110
  Serious: Yes (Hospitalization)
  Sender: FDA-Public Use
  Company Number: IR-B.Braun Medical Inc.-2148588

PATIENT
  Age: 23 Year
  Sex: Female

DRUGS (1)
  1. HEPARIN SODIUM [Suspect]
     Active Substance: HEPARIN SODIUM

REACTIONS (2)
  - Drug ineffective [None]
  - Maternal exposure during pregnancy [None]
